FAERS Safety Report 25105825 (Version 1)
Quarter: 2025Q1

REPORT INFORMATION
  Report Type: Spontaneous
  Country: US (occurrence: US)
  Receive Date: 20250321
  Receipt Date: 20250321
  Transmission Date: 20250409
  Serious: No
  Sender: BRAEBURN PHARMACEUTICALS
  Company Number: US-BRAEBURN-US-BRA-25-000025

PATIENT
  Age: 37 Year
  Sex: Female
  Weight: 105.22 kg

DRUGS (10)
  1. BRIXADI [Suspect]
     Active Substance: BUPRENORPHINE
     Indication: Drug dependence
     Dosage: 24 MILLIGRAM, WEEKLY
     Route: 058
  2. METOPROLOL SUCCINATE [Concomitant]
     Active Substance: METOPROLOL SUCCINATE
     Indication: Product used for unknown indication
     Route: 065
  3. IBUPROFEN [Concomitant]
     Active Substance: IBUPROFEN
     Indication: Product used for unknown indication
     Route: 065
  4. ONDANSETRON HYDROCHLORIDE [Concomitant]
     Active Substance: ONDANSETRON HYDROCHLORIDE
     Indication: Product used for unknown indication
     Route: 065
  5. LYRICA [Concomitant]
     Active Substance: PREGABALIN
     Indication: Product used for unknown indication
     Route: 065
  6. REMERON [Concomitant]
     Active Substance: MIRTAZAPINE
     Indication: Product used for unknown indication
     Route: 065
  7. MELATONIN;THEANINE [Concomitant]
     Indication: Product used for unknown indication
     Route: 065
  8. METFORMIN HYDROCHLORIDE [Concomitant]
     Active Substance: METFORMIN HYDROCHLORIDE
     Indication: Product used for unknown indication
     Route: 065
  9. HYDROCHLOROTHIAZIDE [Concomitant]
     Active Substance: HYDROCHLOROTHIAZIDE
     Indication: Product used for unknown indication
     Route: 065
  10. KLONOPIN [Concomitant]
     Active Substance: CLONAZEPAM
     Indication: Product used for unknown indication
     Route: 065

REACTIONS (5)
  - Product dose omission issue [Unknown]
  - Malaise [Unknown]
  - Feeling abnormal [Unknown]
  - Tremor [Unknown]
  - Pollakiuria [Unknown]

NARRATIVE: CASE EVENT DATE: 20250101
